FAERS Safety Report 9401856 (Version 1)
Quarter: 2013Q3

REPORT INFORMATION
  Report Type: Spontaneous
  Country: NO (occurrence: NO)
  Receive Date: 20130716
  Receipt Date: 20130716
  Transmission Date: 20140515
  Serious: Yes (Hospitalization)
  Sender: FDA-Public Use
  Company Number: NO-ACCORD-018519

PATIENT
  Age: 54 Year
  Sex: Male

DRUGS (7)
  1. NALTREXONE [Suspect]
     Indication: PRODUCT USED FOR UNKNOWN INDICATION
     Dosage: LOW DOSE
     Route: 048
  2. METOPROLOL [Concomitant]
     Indication: CARDIAC DISORDER
     Route: 048
  3. DICLOFENAC [Concomitant]
     Indication: ANALGESIC THERAPY
     Dosage: EVENING
     Route: 048
  4. MORPHINE [Concomitant]
     Indication: ANALGESIC THERAPY
     Route: 048
  5. NOVALUZID [Concomitant]
     Indication: DYSPEPSIA
     Dosage: 1-2 TABLETS AS NEEDED
     Route: 048
  6. PARACET [Concomitant]
     Indication: ANALGESIC THERAPY
     Dosage: EVENING
     Route: 048
  7. SOBRIL [Concomitant]
     Indication: INSOMNIA
     Dosage: AS NEEDED IN THE EVENING
     Route: 048

REACTIONS (5)
  - Hypotension [Recovered/Resolved]
  - Diarrhoea [Recovered/Resolved]
  - Cold sweat [Recovered/Resolved]
  - Abdominal pain upper [Recovered/Resolved]
  - Vomiting [Recovered/Resolved]
